FAERS Safety Report 5290566-4 (Version None)
Quarter: 2007Q2

REPORT INFORMATION
  Report Type: 
  Country: None (occurrence: None)
  Receive Date: 20070409
  Receipt Date: 20070327
  Transmission Date: 20071010
  Serious: Yes (Hospitalization, Other)
  Sender: FDA-Public Use
  Company Number: PHBS2007GB05413

PATIENT
  Age: 69 Year
  Sex: Male

DRUGS (9)
  1. CAFERGOT [Suspect]
     Indication: MIGRAINE
     Dosage: UNK, UNK
     Route: 054
     Dates: start: 20030601, end: 20030901
  2. CAFERGOT [Suspect]
     Dosage: INTERMITTENT
     Route: 054
     Dates: start: 20040701
  3. PREDNISOLONE [Concomitant]
     Dosage: 10 MG, QD
     Route: 065
  4. FLUDROCORTISONE ACETATE [Concomitant]
     Dosage: 100 UG, BID
     Route: 065
  5. INSULIN LISPRO [Concomitant]
     Dosage: 3 UNITS WITH MEALS
  6. INSULIN HUMAN INSULATARD [Concomitant]
     Dosage: 16 UNITS NOCTE
     Route: 065
  7. ASPIRIN [Concomitant]
     Dosage: 75 MG, QD
     Route: 065
  8. DOXYCYCLINE [Concomitant]
     Dosage: 100 MG, BID
     Route: 065
  9. RIFAMPICIN [Concomitant]
     Dosage: 300 MG, BID
     Route: 065

REACTIONS (2)
  - AMPUTATION [None]
  - HYPERTENSION [None]
